FAERS Safety Report 16397764 (Version 2)
Quarter: 2019Q4

REPORT INFORMATION
  Report Type: Spontaneous
  Country: US (occurrence: US)
  Receive Date: 20190606
  Receipt Date: 20191016
  Transmission Date: 20200122
  Serious: Yes (Other)
  Sender: FDA-Public Use
  Company Number: US-SUN PHARMACEUTICAL INDUSTRIES LTD-2019R1-209996

PATIENT
  Age: 27 Year
  Sex: Female

DRUGS (1)
  1. ONDANSETRON [Suspect]
     Active Substance: ONDANSETRON
     Indication: NAUSEA
     Dosage: UNK
     Route: 065

REACTIONS (6)
  - Drug ineffective [Unknown]
  - Vitamin B1 decreased [Unknown]
  - Cholelithiasis [Unknown]
  - Hyperemesis gravidarum [Unknown]
  - Exposure during pregnancy [Unknown]
  - Wernicke^s encephalopathy [Unknown]
